FAERS Safety Report 5727368-8 (Version None)
Quarter: 2008Q2

REPORT INFORMATION
  Report Type: 
  Country: None (occurrence: None)
  Receive Date: 20080430
  Receipt Date: 20080421
  Transmission Date: 20081010
  Serious: Yes (Other)
  Sender: FDA-Public Use
  Company Number: 2008AP001029

PATIENT
  Age: 26 Year
  Sex: Female

DRUGS (1)
  1. PAROXETINE HCL [Suspect]
     Indication: ANXIETY
     Dosage: 30 MG; HS; PO
     Route: 048
     Dates: start: 20080114

REACTIONS (3)
  - DRUG EFFECT DECREASED [None]
  - OEDEMA MOUTH [None]
  - ORAL PAIN [None]
